FAERS Safety Report 5979554-X (Version None)
Quarter: 2008Q4

REPORT INFORMATION
  Report Type: 
  Country: None (occurrence: None)
  Receive Date: 20081204
  Receipt Date: 20081125
  Transmission Date: 20090506
  Serious: Yes (Other)
  Sender: FDA-Public Use
  Company Number: US-ELI_LILLY_AND_COMPANY-US200811005970

PATIENT
  Sex: Male

DRUGS (4)
  1. CYMBALTA [Suspect]
     Indication: BIPOLAR DISORDER
     Dosage: 60 MG, DAILY (1/D)
     Dates: start: 20080901
  2. LAMICTAL [Concomitant]
  3. PREDNISONE TAB [Concomitant]
     Dosage: UNK, 3/W
  4. LISINOPRIL [Concomitant]
     Dosage: UNK, 2/D

REACTIONS (1)
  - ALBUMINURIA [None]
